FAERS Safety Report 7304837-0 (Version None)
Quarter: 2011Q1

REPORT INFORMATION
  Report Type: 
  Country: None (occurrence: None)
  Receive Date: 20110222
  Receipt Date: 20110209
  Transmission Date: 20110831
  Serious: Yes (Other)
  Sender: FDA-Public Use
  Company Number: HR-ELI_LILLY_AND_COMPANY-HR201102003066

PATIENT
  Age: 69 Year
  Sex: Female
  Weight: 76 kg

DRUGS (5)
  1. RAMIPRIL [Concomitant]
     Indication: HYPERTENSION
     Dosage: 7.5 MG, UNK
     Route: 048
  2. RALOXIFENE HYDROCHLORIDE [Suspect]
     Indication: OSTEOPOROSIS
     Dosage: 60 MG, DAILY (1/D)
     Route: 048
     Dates: end: 20101112
  3. BISOPROLOL FUMARATE [Concomitant]
     Dosage: 1.25 MG, DAILY (1/D)
     Route: 048
  4. SIMVASTATIN [Concomitant]
     Indication: HYPERLIPIDAEMIA
     Dosage: 20 MG, DAILY (1/D)
  5. BISOPROLOL FUMARATE [Concomitant]
     Dosage: 2.5 MG, UNK

REACTIONS (4)
  - PALPITATIONS [None]
  - CHEST PAIN [None]
  - VENTRICULAR EXTRASYSTOLES [None]
  - EXTRASYSTOLES [None]
